FAERS Safety Report 25142431 (Version 1)
Quarter: 2025Q1

REPORT INFORMATION
  Report Type: Spontaneous
  Country: US (occurrence: US)
  Receive Date: 20250331
  Receipt Date: 20250331
  Transmission Date: 20250408
  Serious: No
  Sender: EVOLUS, INC.
  Company Number: US-Evolus, Inc.-2024EV000578

PATIENT
  Age: 32 Year
  Sex: Female
  Weight: 59.928 kg

DRUGS (1)
  1. JEUVEAU [Suspect]
     Active Substance: PRABOTULINUMTOXINA-XVFS
     Indication: Product use in unapproved indication
     Dates: start: 20241203, end: 20241203

REACTIONS (8)
  - Dysphagia [Recovering/Resolving]
  - Muscular weakness [Recovering/Resolving]
  - Dry mouth [Recovering/Resolving]
  - Vision blurred [Recovering/Resolving]
  - Chest pain [Recovering/Resolving]
  - Dry eye [Recovering/Resolving]
  - Hypersensitivity [Recovering/Resolving]
  - Off label use [Recovering/Resolving]

NARRATIVE: CASE EVENT DATE: 20241203
